FAERS Safety Report 9347718 (Version 2)
Quarter: 2013Q2

REPORT INFORMATION
  Report Type: Spontaneous
  Country: US (occurrence: US)
  Receive Date: 20130614
  Receipt Date: 20130621
  Transmission Date: 20140414
  Serious: No
  Sender: FDA-Public Use
  Company Number: US-PFIZER INC-2013178749

PATIENT
  Age: 54 Year
  Sex: Female

DRUGS (2)
  1. GABAPENTIN [Suspect]
     Dosage: UNK
  2. LYRICA [Suspect]
     Dosage: UNK

REACTIONS (6)
  - Dizziness [Unknown]
  - Vision blurred [Unknown]
  - Anxiety [Unknown]
  - Gait disturbance [Unknown]
  - Tongue disorder [Unknown]
  - Feeling drunk [Unknown]
